FAERS Safety Report 5871481-1 (Version None)
Quarter: 2008Q3

REPORT INFORMATION
  Report Type: 
  Country: None (occurrence: None)
  Receive Date: 20080905
  Receipt Date: 20080206
  Transmission Date: 20090109
  Serious: No
  Sender: FDA-Public Use
  Company Number: A0709433A

PATIENT
  Sex: Male

DRUGS (8)
  1. REQUIP [Suspect]
     Indication: RESTLESS LEGS SYNDROME
     Route: 048
  2. NEXIUM [Concomitant]
  3. LIPITOR [Concomitant]
  4. PROVIGIL [Concomitant]
  5. EFFEXOR [Concomitant]
  6. FLOMAX [Concomitant]
  7. REMERON [Concomitant]
  8. SEROQUEL [Concomitant]

REACTIONS (1)
  - DRUG INEFFECTIVE [None]
